FAERS Safety Report 5055932-0 (Version None)
Quarter: 2006Q3

REPORT INFORMATION
  Report Type: 
  Country: None (occurrence: None)
  Receive Date: 20060717
  Receipt Date: 20060628
  Transmission Date: 20061208
  Serious: Yes (Hospitalization)
  Sender: FDA-Public Use
  Company Number: 2006RR-02830

PATIENT
  Age: 77 Year
  Sex: Male

DRUGS (6)
  1. ASPIRIN [Suspect]
     Indication: PROPHYLAXIS
     Dosage: 75 MG, ORAL
     Route: 048
     Dates: end: 20051107
  2. CLOMIPRAMINE HCL [Concomitant]
  3. DILTIEM TABLETS (DILTIAZEM) [Concomitant]
  4. GLYCERYL TRINITRATE [Concomitant]
  5. OLANZAPINE FAMILY (OLANZAPINE) [Concomitant]
  6. SIMVASTATIN [Concomitant]

REACTIONS (2)
  - RECTAL HAEMORRHAGE [None]
  - SYNCOPE [None]
